FAERS Safety Report 8432188-X (Version None)
Quarter: 2012Q2

REPORT INFORMATION
  Report Type: 
  Country: None (occurrence: None)
  Receive Date: 20120613
  Receipt Date: 20120604
  Transmission Date: 20120825
  Serious: Yes (Other)
  Sender: FDA-Public Use
  Company Number: US-BAYER-2012-039231

PATIENT
  Age: 41 Year
  Sex: Female

DRUGS (5)
  1. YASMIN [Suspect]
  2. CEPHALEXIN [Concomitant]
     Dosage: 500 MG, UNK
     Dates: start: 20071126
  3. YAZ [Suspect]
  4. DROSPIRENONE AND ETHINYL ESTRADIOL [Suspect]
  5. DIOVAN [Concomitant]
     Dosage: 80 AND 12.5
     Route: 048
     Dates: start: 20061218, end: 20120130

REACTIONS (3)
  - INJURY [None]
  - PAIN [None]
  - DEEP VEIN THROMBOSIS [None]
